FAERS Safety Report 4355686-7 (Version None)
Quarter: 2004Q2

REPORT INFORMATION
  Report Type: 
  Country: None (occurrence: None)
  Receive Date: 20040510
  Receipt Date: 20000809
  Transmission Date: 20050107
  Serious: Yes (Hospitalization)
  Sender: FDA-Public Use
  Company Number: FR-AMGEN-00030878

PATIENT
  Sex: Female

DRUGS (13)
  1. ETANERCEPT [Suspect]
     Indication: RHEUMATOID ARTHRITIS
     Route: 058
     Dates: start: 19980625
  2. ETANERCEPT [Suspect]
  3. PREDNISONE [Suspect]
     Route: 048
     Dates: start: 19980223, end: 19991003
  4. PREDNISONE [Suspect]
     Route: 048
     Dates: start: 19991004, end: 19991010
  5. PREDNISONE [Suspect]
     Route: 048
     Dates: start: 19991010, end: 19991107
  6. PREDNISONE [Suspect]
     Route: 048
     Dates: start: 19991108
  7. OMEPRAZOLE [Concomitant]
     Dates: start: 19950101
  8. BROMAZEPAM [Concomitant]
     Dates: start: 19960101
  9. ZOPICLONE [Concomitant]
     Dates: start: 19970101
  10. METOPROLOL [Concomitant]
     Dates: start: 19991007
  11. DEXTROPROPOXYPHENE [Concomitant]
     Dates: start: 19980514
  12. INDAPAMIDE [Concomitant]
     Dates: start: 19980908
  13. POTASSIUM CHLORIDE [Concomitant]
     Dates: start: 19991020

REACTIONS (3)
  - AORTIC ATHEROSCLEROSIS [None]
  - LOCAL SWELLING [None]
  - SWELLING FACE [None]
